FAERS Safety Report 4438886-7 (Version None)
Quarter: 2004Q3

REPORT INFORMATION
  Report Type: 
  Country: None (occurrence: None)
  Receive Date: 20040830
  Receipt Date: 20040816
  Transmission Date: 20050211
  Serious: Yes (Hospitalization)
  Sender: FDA-Public Use
  Company Number: 203165

PATIENT
  Age: 66 Year
  Sex: Female
  Weight: 40.3701 kg

DRUGS (4)
  1. AVONEX [Suspect]
     Indication: MULTIPLE SCLEROSIS
     Dosage: 30 MCG QW IM
     Route: 030
     Dates: start: 19990201
  2. LIPITOR [Concomitant]
  3. NEURONTIN [Concomitant]
  4. METHOTREXATE [Concomitant]

REACTIONS (6)
  - BLADDER CANCER [None]
  - CLOSTRIDIAL INFECTION [None]
  - CONVULSION [None]
  - DYSPNOEA [None]
  - URINARY TRACT INFECTION [None]
  - WEIGHT DECREASED [None]
